FAERS Safety Report 4893106-4 (Version None)
Quarter: 2005Q4

REPORT INFORMATION
  Report Type: 
  Country: None (occurrence: None)
  Receive Date: 20051220
  Receipt Date: 20050621
  Transmission Date: 20060501
  Serious: Yes (Life-Threatening, Other)
  Sender: FDA-Public Use
  Company Number: 200510991BWH

PATIENT
  Age: 78 Year
  Sex: Female

DRUGS (9)
  1. TRASYLOL [Suspect]
     Indication: HEART VALVE OPERATION
     Dosage: 175 MG, TOTAL DIALY, INTRAVENOUS
     Route: 042
     Dates: start: 20050101
  2. TRASYLOL [Suspect]
     Indication: HEART VALVE OPERATION
     Dosage: 175 MG, TOTAL DIALY, INTRAVENOUS
     Route: 042
     Dates: start: 20050513
  3. COLACE [Concomitant]
  4. SYNTHROID [Concomitant]
  5. INSULIN [Concomitant]
  6. RIFAMPIN [Concomitant]
  7. PROTONIX [Concomitant]
  8. PITRESSIN [Concomitant]
  9. PARBEPOETIN [Concomitant]

REACTIONS (2)
  - ANAPHYLACTIC REACTION [None]
  - HYPOTENSION [None]
